FAERS Safety Report 8561257-9 (Version None)
Quarter: 2012Q3

REPORT INFORMATION
  Report Type: 
  Country: None (occurrence: None)
  Receive Date: 20120802
  Receipt Date: 20120727
  Transmission Date: 20120928
  Serious: Yes (Life-Threatening)
  Sender: FDA-Public Use
  Company Number: JP-PFIZER INC-2012182998

PATIENT
  Age: 84 Year
  Sex: Female
  Weight: 40 kg

DRUGS (11)
  1. REVATIO [Suspect]
     Dosage: 20 MG, 3X/DAY
     Dates: start: 20111215, end: 20120105
  2. BLOPRESS [Concomitant]
  3. DIGOXIN [Concomitant]
  4. PRAVASTATIN [Concomitant]
  5. LANSOPRAZOLE [Concomitant]
     Indication: GASTRITIS PROPHYLAXIS
  6. SIGMART [Concomitant]
     Route: 048
  7. REVATIO [Suspect]
     Indication: PULMONARY ARTERIAL HYPERTENSION
     Dosage: 10 MG, 3X/DAY
     Dates: start: 20111201, end: 20111214
  8. ASPIRIN [Concomitant]
     Route: 048
  9. WARFARIN [Concomitant]
     Route: 048
  10. LASIX [Concomitant]
     Route: 048
  11. ARTIST [Concomitant]

REACTIONS (1)
  - PNEUMONIA [None]
